FAERS Safety Report 7654729-2 (Version None)
Quarter: 2011Q3

REPORT INFORMATION
  Report Type: 
  Country: None (occurrence: None)
  Receive Date: 20110804
  Receipt Date: 20110725
  Transmission Date: 20111222
  Serious: No
  Sender: FDA-Public Use
  Company Number: US-BIOGENIDEC-2010BI040360

PATIENT
  Sex: Female

DRUGS (3)
  1. MEDICINE (NOS) [Concomitant]
     Indication: MULTIPLE SCLEROSIS
  2. TYSABRI [Suspect]
     Indication: MULTIPLE SCLEROSIS
     Route: 042
     Dates: start: 20100923, end: 20110215
  3. CARBAMAZEPINE [Concomitant]
     Indication: TRIGEMINAL NEURALGIA

REACTIONS (11)
  - DRUG INEFFECTIVE [None]
  - GAIT DISTURBANCE [None]
  - CONSTIPATION [None]
  - MOBILITY DECREASED [None]
  - DIARRHOEA [None]
  - FATIGUE [None]
  - BRADYPHRENIA [None]
  - BALANCE DISORDER [None]
  - FAECAL INCONTINENCE [None]
  - DYSGRAPHIA [None]
  - BLOOD PRESSURE INCREASED [None]
